FAERS Safety Report 10645652 (Version 4)
Quarter: 2015Q1

REPORT INFORMATION
  Report Type: Spontaneous
  Country: CH (occurrence: None)
  Receive Date: 20141209
  Receipt Date: 20150224
  Transmission Date: 20150720
  Serious: Yes (Other)
  Sender: FDA-Public Use
  Company Number: 20140774

PATIENT
  Age: 40 Year
  Sex: Female
  Weight: 90 kg

DRUGS (12)
  1. VENOFER [Suspect]
     Active Substance: IRON SUCROSE
     Indication: HAEMODIALYSIS
     Dates: start: 201301, end: 20141118
  2. CARDURA XL (DOXAZOSIN  MESILATE, DOXAZOSIN) [Concomitant]
  3. VENOFER [Suspect]
     Active Substance: IRON SUCROSE
     Indication: ANAEMIA
     Dates: start: 201301, end: 20141118
  4. ZOLAFREN (OLANZAPINE) [Concomitant]
  5. ACIDUM FOLICUM (FOLIC ACID) [Concomitant]
  6. EUTHYROX (LEVOTHYROXINE) [Concomitant]
  7. ALFADIOL (ALFACALCIDOL, ALPHADIOLUM) [Concomitant]
  8. LEVOTHYROXINE [Concomitant]
     Active Substance: LEVOTHYROXINE
  9. DEPAKINE CHRONO (VALPROIC) [Concomitant]
  10. HELICID (OMEPRAZOLE) [Concomitant]
  11. NEBILET (NEBIVOLOL) HYDROCHLORIDE [Concomitant]
  12. PYRIDOXINE HYDROCHLORIDE. [Concomitant]
     Active Substance: PYRIDOXINE HYDROCHLORIDE

REACTIONS (7)
  - Polyhydramnios [None]
  - Premature rupture of membranes [None]
  - Premature labour [None]
  - Premature delivery [None]
  - Pregnancy [None]
  - Maternal exposure during pregnancy [None]
  - Caesarean section [None]

NARRATIVE: CASE EVENT DATE: 2014
